FAERS Safety Report 22038321 (Version 1)
Quarter: 2023Q1

REPORT INFORMATION
  Report Type: Report from Study
  Country: PR (occurrence: PR)
  Receive Date: 20230227
  Receipt Date: 20230227
  Transmission Date: 20230418
  Serious: Yes (Other)
  Sender: FDA-Public Use
  Company Number: PR-ABBVIE-4319418

PATIENT
  Sex: Female

DRUGS (3)
  1. HUMIRA [Suspect]
     Active Substance: ADALIMUMAB
     Indication: Rheumatoid arthritis
     Route: 058
     Dates: start: 20220411
  2. METHOTREXATE [Concomitant]
     Active Substance: METHOTREXATE
     Indication: Rheumatoid arthritis
     Dosage: STRENGTH-2.5 MILLIGRAM
     Route: 048
  3. SYNTHROID [Concomitant]
     Active Substance: LEVOTHYROXINE SODIUM
     Indication: Hypothyroidism
     Dosage: 1 TABLET STRENGTH-25 MICROGRAM
     Route: 048

REACTIONS (3)
  - Elbow operation [Recovering/Resolving]
  - Tendon rupture [Recovering/Resolving]
  - Osteoarthritis [Recovering/Resolving]
